FAERS Safety Report 12839079 (Version 1)
Quarter: 2016Q4

REPORT INFORMATION
  Report Type: Spontaneous
  Country: US (occurrence: US)
  Receive Date: 20161012
  Receipt Date: 20161012
  Transmission Date: 20170207
  Serious: No
  Sender: FDA-Public Use
  Company Number: US-TEVA-671450USA

PATIENT
  Sex: Female

DRUGS (1)
  1. ZECUITY [Suspect]
     Active Substance: SUMATRIPTAN SUCCINATE
     Route: 062

REACTIONS (5)
  - Application site rash [Recovered/Resolved]
  - Product physical issue [Unknown]
  - Rash papular [Recovered/Resolved]
  - Application site erythema [Recovered/Resolved]
  - Application site mass [Recovered/Resolved]
